FAERS Safety Report 10437737 (Version 2)
Quarter: 2014Q3

REPORT INFORMATION
  Report Type: Spontaneous
  Country: US (occurrence: US)
  Receive Date: 20140908
  Receipt Date: 20140910
  Transmission Date: 20150326
  Serious: No
  Sender: FDA-Public Use
  Company Number: US-TEVA-505969USA

PATIENT
  Sex: Male
  Weight: 210 kg

DRUGS (3)
  1. NUVIGIL [Suspect]
     Active Substance: ARMODAFINIL
     Dates: start: 2014, end: 2014
  2. NUVIGIL [Suspect]
     Active Substance: ARMODAFINIL
     Indication: SLEEP APNOEA SYNDROME
     Dates: start: 201407, end: 20140822
  3. NUVIGIL [Suspect]
     Active Substance: ARMODAFINIL
     Dates: start: 201407, end: 20140822

REACTIONS (2)
  - Drug ineffective [Unknown]
  - Somnolence [Unknown]
